FAERS Safety Report 8016861-3 (Version None)
Quarter: 2012Q1

REPORT INFORMATION
  Report Type: 
  Country: None (occurrence: None)
  Receive Date: 20120102
  Receipt Date: 20111219
  Transmission Date: 20120608
  Serious: Yes (Other)
  Sender: FDA-Public Use
  Company Number: PHHY2011IE105882

PATIENT
  Sex: Female

DRUGS (7)
  1. ROSUVASTATIN [Concomitant]
     Indication: BLOOD CHOLESTEROL INCREASED
     Dosage: 10 MG, ONCE DAILY
     Route: 048
     Dates: start: 20110218
  2. LEVOTHYROXINE SODIUM [Concomitant]
     Indication: THYROID DISORDER
     Dosage: 100 MG/ONCE  DAILY
     Route: 048
     Dates: start: 20030801
  3. DICLOFENAC SODIUM [Concomitant]
     Dosage: UNK UKN, UNK
     Route: 062
     Dates: start: 20110218
  4. EXELON [Suspect]
     Indication: DEMENTIA
     Dosage: 4.6 MG/24 HOURS
     Route: 062
     Dates: start: 20111024
  5. ZOLPIDEM [Concomitant]
     Indication: INSOMNIA
     Dosage: 10 MG/ ONCE DAILY
     Route: 048
     Dates: start: 20051013
  6. NSAID'S [Concomitant]
     Dosage: 75 MG, ONCE DAILY
     Route: 048
     Dates: start: 20110218
  7. GLUCOPHAGE [Concomitant]
     Indication: TYPE 2 DIABETES MELLITUS
     Dosage: 1000 MG/ ONCE DAILY
     Route: 048
     Dates: start: 20100813

REACTIONS (1)
  - ABNORMAL DREAMS [None]
